FAERS Safety Report 24303565 (Version 2)
Quarter: 2024Q3

REPORT INFORMATION
  Report Type: Spontaneous
  Country: US (occurrence: US)
  Receive Date: 20240910
  Receipt Date: 20240911
  Transmission Date: 20241017
  Serious: No
  Sender: NOVARTIS
  Company Number: US-002147023-NVSC2024US181113

PATIENT
  Age: 74 Year
  Sex: Female

DRUGS (1)
  1. LEQVIO [Suspect]
     Active Substance: INCLISIRAN SODIUM
     Indication: Low density lipoprotein increased
     Dosage: UNK (284MG/1.5ML) (DAY ZERO, 3 MONTHS, PATIENT IS DUE FOR 6 MONTH INJECTION)
     Route: 058
     Dates: start: 20231201

REACTIONS (1)
  - Drug ineffective [Unknown]
